FAERS Safety Report 9856865 (Version 1)
Quarter: 2014Q1

REPORT INFORMATION
  Report Type: Spontaneous
  Country: US (occurrence: None)
  Receive Date: 20140128
  Receipt Date: 20140128
  Transmission Date: 20141002
  Serious: Yes (Death)
  Sender: FDA-Public Use
  Company Number: IPC201401-000044

PATIENT
  Age: 24 Year
  Sex: Female

DRUGS (10)
  1. WARFARIN (WARFARIN) (WARFARIN) [Suspect]
     Indication: RHEUMATIC HEART DISEASE
     Dosage: 35 MG/WEEK
  2. WARFARIN (WARFARIN) (WARFARIN) [Suspect]
     Indication: ATRIAL THROMBOSIS
     Dosage: 35 MG/WEEK
  3. RIFAMPIN [Suspect]
     Indication: TUBERCULOSIS
     Dosage: 450 MG/DAY
  4. ISONIAZID (ISONIAZID) (ISONIAZID)?? [Concomitant]
  5. PYRAZINAMIDE (PYRAZINAMIDE) (PYRAZINAMIDE) [Concomitant]
  6. ETHAMBUTOL (ETHAMBUTOL) (ETHAMBUTOL) [Concomitant]
  7. ENALAPRIL (ENALAPRIL) (ENALAPRIL) [Concomitant]
  8. CARVEDILOL (CARVEDILOL) (CARVEDILOL) [Concomitant]
  9. FUROSEMIDE (FUROSEMIDE) (FUROSEMIDE) [Concomitant]
  10. DIZOXIN (DIZOXIN) (DIZOXIN) [Concomitant]

REACTIONS (2)
  - Drug interaction [None]
  - Overdose [None]
